FAERS Safety Report 16970759 (Version 1)
Quarter: 2019Q4

REPORT INFORMATION
  Report Type: Report from Study
  Country: US (occurrence: US)
  Receive Date: 20191029
  Receipt Date: 20191029
  Transmission Date: 20200122
  Serious: Yes (Death)
  Sender: FDA-Public Use
  Company Number: US-TAIHO ONCOLOGY  INC-EU-2019-03546

PATIENT
  Age: 62 Year
  Sex: Male

DRUGS (9)
  1. OXYCODONE [Concomitant]
     Active Substance: OXYCODONE
     Dosage: NI
  2. ZOLPIDEM [Concomitant]
     Active Substance: ZOLPIDEM TARTRATE
     Dosage: NI
  3. FENTANYL. [Concomitant]
     Active Substance: FENTANYL
     Dosage: NI
  4. ALBUTEROL. [Concomitant]
     Active Substance: ALBUTEROL
     Dosage: NI
  5. GABAPENTIN. [Concomitant]
     Active Substance: GABAPENTIN
     Dosage: NI
  6. LONSURF [Suspect]
     Active Substance: TIPIRACIL HYDROCHLORIDE\TRIFLURIDINE
     Indication: METASTASES TO BONE
     Dosage: CYCLE NUMBER UNKNOWN.
     Route: 048
     Dates: start: 20190615
  7. ONDANSETRON [Concomitant]
     Active Substance: ONDANSETRON
     Dosage: NI
  8. CALCIUM [Concomitant]
     Active Substance: CALCIUM
     Dosage: NI
  9. DEXAMETHASON [Concomitant]
     Active Substance: DEXAMETHASONE
     Dosage: NI

REACTIONS (2)
  - Death [Fatal]
  - Intentional product use issue [Unknown]

NARRATIVE: CASE EVENT DATE: 2019
